FAERS Safety Report 19755897 (Version 4)
Quarter: 2025Q1

REPORT INFORMATION
  Report Type: Spontaneous
  Country: US (occurrence: US)
  Receive Date: 20210827
  Receipt Date: 20250327
  Transmission Date: 20250409
  Serious: No
  Sender: PFIZER
  Company Number: US-PFIZER INC-202100980010

PATIENT
  Age: 58 Year
  Sex: Male

DRUGS (6)
  1. METHOTREXATE SODIUM [Suspect]
     Active Substance: METHOTREXATE SODIUM
     Route: 058
  2. XELJANZ XR [Concomitant]
     Active Substance: TOFACITINIB CITRATE
  3. OMEPRAZOLE [Concomitant]
     Active Substance: OMEPRAZOLE
  4. HYDROCODONE [Concomitant]
     Active Substance: HYDROCODONE
  5. POTASSIUM [Concomitant]
     Active Substance: POTASSIUM
  6. PREDNISONE [Concomitant]
     Active Substance: PREDNISONE

REACTIONS (5)
  - Liver function test increased [Unknown]
  - Drug hypersensitivity [Unknown]
  - Nausea [Unknown]
  - Seasonal allergy [Unknown]
  - Off label use [Unknown]
